FAERS Safety Report 8541448-3 (Version None)
Quarter: 2012Q3

REPORT INFORMATION
  Report Type: 
  Country: None (occurrence: None)
  Receive Date: 20120726
  Receipt Date: 20120718
  Transmission Date: 20120928
  Serious: Yes (Other)
  Sender: FDA-Public Use
  Company Number: US-ALLERGAN-1209996US

PATIENT
  Age: 57 Year
  Sex: Male

DRUGS (5)
  1. PREDNISOLONE ACETATE [Suspect]
     Dosage: UNK UNK, QD
     Route: 047
     Dates: start: 20070601
  2. MOXIFLOXACIN [Concomitant]
     Indication: PRODUCT USED FOR UNKNOWN INDICATION
     Dosage: UNK UNK, QID
     Route: 047
     Dates: start: 20070301, end: 20070601
  3. OFLOXACIN UNK [Concomitant]
     Indication: PROPHYLAXIS
     Dosage: UNK UNK, BID
     Route: 047
     Dates: start: 20070601
  4. PREDNISOLONE ACETATE [Suspect]
     Indication: PRODUCT USED FOR UNKNOWN INDICATION
     Dosage: UNK UNK, QID
     Route: 047
     Dates: start: 20070301, end: 20070601
  5. KONTUR LENS (KONTUR KONTACT LENS, RICHMOND, CA) [Suspect]
     Indication: PRODUCT USED FOR UNKNOWN INDICATION
     Dosage: UNK, Q MONTH
     Route: 047
     Dates: start: 20070301

REACTIONS (2)
  - ENDOPHTHALMITIS [None]
  - KERATITIS FUNGAL [None]
